FAERS Safety Report 9288979 (Version 1)
Quarter: 2013Q2

REPORT INFORMATION
  Report Type: Spontaneous
  Country: IT (occurrence: IT)
  Receive Date: 20130514
  Receipt Date: 20130514
  Transmission Date: 20140414
  Serious: Yes (Hospitalization)
  Sender: FDA-Public Use
  Company Number: IT-GLAXOSMITHKLINE-B0891438A

PATIENT
  Age: 59 Year
  Sex: Female

DRUGS (3)
  1. ZANTAC [Suspect]
     Indication: ABDOMINAL PAIN
     Dosage: 1U PER DAY
     Route: 042
     Dates: start: 20130430, end: 20130430
  2. BUSCOPAN [Suspect]
     Indication: ABDOMINAL PAIN
     Dosage: 1U PER DAY
     Route: 042
     Dates: start: 20130430, end: 20130430
  3. ORUDIS [Suspect]
     Indication: ABDOMINAL PAIN
     Dosage: 1U PER DAY
     Route: 042
     Dates: start: 20130430, end: 20130430

REACTIONS (2)
  - Dyspnoea [Recovered/Resolved]
  - Throat tightness [Recovered/Resolved]
